FAERS Safety Report 14773757 (Version 1)
Quarter: 2018Q2

REPORT INFORMATION
  Report Type: Spontaneous
  Country: US (occurrence: US)
  Receive Date: 20180418
  Receipt Date: 20180418
  Transmission Date: 20180711
  Serious: Yes (Hospitalization)
  Sender: FDA-Public Use
  Company Number: US-ELI_LILLY_AND_COMPANY-US201804005188

PATIENT
  Sex: Male

DRUGS (1)
  1. CIALIS [Suspect]
     Active Substance: TADALAFIL
     Indication: BLOOD URINE PRESENT
     Dosage: 5 MG, UNKNOWN
     Route: 065

REACTIONS (2)
  - Prostatic disorder [Unknown]
  - Off label use [Unknown]
